FAERS Safety Report 22248844 (Version 1)
Quarter: 2023Q2

REPORT INFORMATION
  Report Type: Report from Study
  Country: US (occurrence: US)
  Receive Date: 20230425
  Receipt Date: 20230425
  Transmission Date: 20230722
  Serious: Yes (Other)
  Sender: FDA-Public Use
  Company Number: US-002147023-NVSC2023US089800

PATIENT
  Sex: Male
  Weight: 104.78 kg

DRUGS (12)
  1. BUPROPION [Suspect]
     Active Substance: BUPROPION
     Indication: Psoriasis
     Dosage: 150 MG
     Route: 048
  2. BUPROPION [Suspect]
     Active Substance: BUPROPION
     Indication: Psoriatic arthropathy
     Dosage: 300 MG
     Route: 048
  3. GABAPENTIN [Suspect]
     Active Substance: GABAPENTIN
     Indication: Psoriasis
     Dosage: 100 MG
     Route: 048
  4. GABAPENTIN [Suspect]
     Active Substance: GABAPENTIN
     Indication: Psoriatic arthropathy
  5. METOPROLOL [Suspect]
     Active Substance: METOPROLOL
     Indication: Psoriasis
     Dosage: 25 MG
     Route: 048
  6. METOPROLOL [Suspect]
     Active Substance: METOPROLOL
     Indication: Psoriatic arthropathy
     Dosage: 37.5 MG
     Route: 065
  7. TRIAMCINOLONE [Suspect]
     Active Substance: TRIAMCINOLONE
     Indication: Psoriasis
     Dosage: 0.1 %
     Route: 061
  8. TRIAMCINOLONE [Suspect]
     Active Substance: TRIAMCINOLONE
     Indication: Psoriatic arthropathy
  9. MAGNESIUM [Suspect]
     Active Substance: MAGNESIUM
     Indication: Psoriasis
     Dosage: 250 MG
     Route: 048
  10. MAGNESIUM [Suspect]
     Active Substance: MAGNESIUM
     Indication: Psoriatic arthropathy
  11. ZINC [Suspect]
     Active Substance: ZINC
     Indication: Psoriasis
     Dosage: UNK
     Route: 065
  12. ZINC [Suspect]
     Active Substance: ZINC
     Indication: Psoriatic arthropathy

REACTIONS (4)
  - Psoriatic arthropathy [Unknown]
  - Psoriasis [Unknown]
  - Drug ineffective for unapproved indication [Unknown]
  - Product use in unapproved indication [Unknown]
